FAERS Safety Report 22119810 (Version 1)
Quarter: 2023Q1

REPORT INFORMATION
  Report Type: Spontaneous
  Country: US (occurrence: None)
  Receive Date: 20230321
  Receipt Date: 20230321
  Transmission Date: 20230417
  Serious: No
  Sender: FDA-Public Use
  Company Number: US-ROCHE-3142386

PATIENT
  Sex: Male

DRUGS (1)
  1. ERIVEDGE [Suspect]
     Active Substance: VISMODEGIB
     Indication: Basal cell carcinoma
     Route: 065

REACTIONS (7)
  - Fatigue [Unknown]
  - Weight decreased [Unknown]
  - Alopecia [Unknown]
  - Taste disorder [Unknown]
  - Parosmia [Unknown]
  - Dysgeusia [Unknown]
  - Drug ineffective [Unknown]
